FAERS Safety Report 13491947 (Version 2)
Quarter: 2017Q2

REPORT INFORMATION
  Report Type: Report from Study
  Country: US (occurrence: US)
  Receive Date: 20170427
  Receipt Date: 20170517
  Transmission Date: 20170830
  Serious: Yes (Hospitalization)
  Sender: FDA-Public Use
  Company Number: PHHY2017US061271

PATIENT
  Age: 14 Year
  Sex: Male

DRUGS (3)
  1. CRIZOTINIB [Suspect]
     Active Substance: CRIZOTINIB
     Indication: PRODUCT USED FOR UNKNOWN INDICATION
     Dosage: 4200 MG, CYCLIC
     Route: 065
     Dates: start: 20170123, end: 20170130
  2. CYCLOPHOSPHAMIDE. [Suspect]
     Active Substance: CYCLOPHOSPHAMIDE
     Indication: PRODUCT USED FOR UNKNOWN INDICATION
     Dosage: 2140 MG, CYCLIC
     Route: 065
     Dates: start: 20170123, end: 20170127
  3. HYCAMTIN [Suspect]
     Active Substance: TOPOTECAN HYDROCHLORIDE
     Indication: PRODUCT USED FOR UNKNOWN INDICATION
     Dosage: 6.4 MG, CYCLIC
     Route: 065
     Dates: start: 20170123, end: 20170127

REACTIONS (15)
  - Hyperammonaemia [Recovering/Resolving]
  - Abdominal pain [Not Recovered/Not Resolved]
  - Movement disorder [Unknown]
  - Encephalopathy [Unknown]
  - Somnolence [Unknown]
  - Altered state of consciousness [Unknown]
  - Aggression [Unknown]
  - Paraneoplastic syndrome [Unknown]
  - Retching [Unknown]
  - Mental status changes [Recovering/Resolving]
  - Nausea [Unknown]
  - Disorientation [Unknown]
  - Ornithine transcarbamoylase deficiency [Unknown]
  - Vomiting [Not Recovered/Not Resolved]
  - Hypophagia [Unknown]

NARRATIVE: CASE EVENT DATE: 20170130
